FAERS Safety Report 14841035 (Version 1)
Quarter: 2018Q2

REPORT INFORMATION
  Report Type: Report from Study
  Country: None (occurrence: NZ)
  Receive Date: 20180503
  Receipt Date: 20180503
  Transmission Date: 20180711
  Serious: Yes (Hospitalization, Other)
  Sender: FDA-Public Use
  Company Number: NZ-ABBVIE-18K-118-2339237-00

PATIENT
  Age: 35 Year
  Sex: Female

DRUGS (3)
  1. HUMIRA [Suspect]
     Active Substance: ADALIMUMAB
     Route: 058
     Dates: start: 20180112
  2. HUMIRA [Suspect]
     Active Substance: ADALIMUMAB
     Indication: CROHN^S DISEASE
     Route: 058
  3. MORPHINE [Suspect]
     Active Substance: MORPHINE
     Indication: PRODUCT USED FOR UNKNOWN INDICATION
     Route: 048

REACTIONS (7)
  - Large intestinal stenosis [Unknown]
  - Intestinal scarring [Unknown]
  - Chest discomfort [Unknown]
  - Drug ineffective [Unknown]
  - Nasopharyngitis [Unknown]
  - Gastrointestinal pain [Unknown]
  - Throat irritation [Unknown]

NARRATIVE: CASE EVENT DATE: 201712
